FAERS Safety Report 9612453 (Version 2)
Quarter: 2013Q4

REPORT INFORMATION
  Report Type: Spontaneous
  Country: SE (occurrence: SE)
  Receive Date: 20131010
  Receipt Date: 20131025
  Transmission Date: 20140711
  Serious: Yes (Hospitalization)
  Sender: FDA-Public Use
  Company Number: SE-NOVOPROD-389259

PATIENT
  Age: 77 Year
  Sex: Male
  Weight: 109 kg

DRUGS (4)
  1. NOVOMIX 30 FLEXPEN [Suspect]
     Indication: TYPE 2 DIABETES MELLITUS
     Dosage: 162 IU, DIVIDED INTO 3 DOSES/DAY
     Route: 058
     Dates: start: 2003
  2. NOVOMIX 30 FLEXPEN [Suspect]
     Dosage: UNKNOWN
     Route: 058
     Dates: end: 20131008
  3. FURIX [Concomitant]
     Dosage: 30 MG, QD
     Route: 048
  4. ATACAND [Concomitant]
     Dosage: 8 MG, QD
     Route: 048

REACTIONS (2)
  - Cerebral infarction [Recovering/Resolving]
  - Blood glucose fluctuation [Not Recovered/Not Resolved]
